FAERS Safety Report 8168008-0 (Version None)
Quarter: 2012Q1

REPORT INFORMATION
  Report Type: 
  Country: None (occurrence: None)
  Receive Date: 20120103
  Receipt Date: 20111107
  Transmission Date: 20120608
  Serious: No
  Sender: FDA-Public Use
  Company Number: AE-2011-003152

PATIENT
  Age: 56 Year
  Sex: Female
  Weight: 77.1115 kg

DRUGS (11)
  1. BUSPAR [Concomitant]
  2. CENTRUM SILVER MULTIVITAMIN (CENTRUM SILVER) [Concomitant]
  3. INCIVEK [Suspect]
     Dosage: 2250 MG (750 MG,1 IN 8 HR),ORAL
     Route: 048
     Dates: start: 20110824
  4. SYNTHROID [Concomitant]
  5. SAVELLA [Concomitant]
  6. VITAMIN B12 [Concomitant]
  7. PEGASYS [Concomitant]
  8. CELEXA [Concomitant]
  9. RIBAVIRIN [Concomitant]
  10. LYRICA [Concomitant]
  11. NORFLEX [Concomitant]

REACTIONS (2)
  - ANORECTAL DISCOMFORT [None]
  - RASH PRURITIC [None]
